FAERS Safety Report 24457647 (Version 1)
Quarter: 2024Q4

REPORT INFORMATION
  Report Type: Report from Study
  Country: ZA (occurrence: ZA)
  Receive Date: 20241018
  Receipt Date: 20241018
  Transmission Date: 20250115
  Serious: Yes (Hospitalization)
  Sender: ALEXION PHARMACEUTICALS
  Company Number: ZA-AstraZeneca-CH-00723519A

PATIENT
  Age: 75 Year

DRUGS (24)
  1. BUDESONIDE\FORMOTEROL [Suspect]
     Active Substance: BUDESONIDE\FORMOTEROL
     Indication: Asthma
     Dosage: 120 MILLIGRAM
  2. BUDESONIDE\FORMOTEROL [Suspect]
     Active Substance: BUDESONIDE\FORMOTEROL
     Dosage: 120 MILLIGRAM
  3. BUDESONIDE\FORMOTEROL [Suspect]
     Active Substance: BUDESONIDE\FORMOTEROL
     Dosage: 120 MILLIGRAM
  4. BUDESONIDE\FORMOTEROL [Suspect]
     Active Substance: BUDESONIDE\FORMOTEROL
     Dosage: 120 MILLIGRAM
  5. UNSPECIFIED INGREDIENT [Suspect]
     Active Substance: UNSPECIFIED INGREDIENT
  6. UNSPECIFIED INGREDIENT [Suspect]
     Active Substance: UNSPECIFIED INGREDIENT
  7. FLUTICASONE PROPIONATE [Concomitant]
     Active Substance: FLUTICASONE PROPIONATE
     Indication: Hypersensitivity
  8. FLUTICASONE PROPIONATE [Concomitant]
     Active Substance: FLUTICASONE PROPIONATE
  9. OXYMETAZOLINE HYDROCHLORIDE [Concomitant]
     Active Substance: OXYMETAZOLINE HYDROCHLORIDE
  10. OXYMETAZOLINE HYDROCHLORIDE [Concomitant]
     Active Substance: OXYMETAZOLINE HYDROCHLORIDE
  11. EUTHYROX [Concomitant]
     Active Substance: LEVOTHYROXINE SODIUM
     Indication: Hypothyroidism
  12. EUTHYROX [Concomitant]
     Active Substance: LEVOTHYROXINE SODIUM
  13. CICLESONIDE [Concomitant]
     Active Substance: CICLESONIDE
     Indication: Hypersensitivity
  14. CICLESONIDE [Concomitant]
     Active Substance: CICLESONIDE
  15. ROSUVASTATIN [Concomitant]
     Active Substance: ROSUVASTATIN
     Indication: Blood cholesterol
  16. ROSUVASTATIN [Concomitant]
     Active Substance: ROSUVASTATIN
  17. PREMARIN [Concomitant]
     Active Substance: ESTROGENS, CONJUGATED
     Indication: Hormone replacement therapy
  18. PREMARIN [Concomitant]
     Active Substance: ESTROGENS, CONJUGATED
  19. ETORICOXIB [Concomitant]
     Active Substance: ETORICOXIB
  20. ETORICOXIB [Concomitant]
     Active Substance: ETORICOXIB
  21. DEXILANT [Concomitant]
     Active Substance: DEXLANSOPRAZOLE
  22. DEXILANT [Concomitant]
     Active Substance: DEXLANSOPRAZOLE
  23. TWYNSTA [Concomitant]
     Active Substance: AMLODIPINE BESYLATE\TELMISARTAN
     Indication: Hypertension
  24. TWYNSTA [Concomitant]
     Active Substance: AMLODIPINE BESYLATE\TELMISARTAN

REACTIONS (3)
  - Blood sodium decreased [Unknown]
  - Diarrhoea [Unknown]
  - Bronchitis [Unknown]
